FAERS Safety Report 7133436-9 (Version None)
Quarter: 2010Q4

REPORT INFORMATION
  Report Type: 
  Country: None (occurrence: None)
  Receive Date: 20101202
  Receipt Date: 20101129
  Transmission Date: 20110411
  Serious: Yes (Other)
  Sender: FDA-Public Use
  Company Number: PHHO2008US11782

PATIENT
  Sex: Male
  Weight: 85 kg

DRUGS (4)
  1. AREDIA [Suspect]
     Indication: RENAL CELL CARCINOMA
     Dosage: UNK
     Route: 042
     Dates: start: 20050110, end: 20071122
  2. SUTENT [Concomitant]
     Indication: RENAL CELL CARCINOMA
     Dosage: 50 MG (50 MG CYCLIC : 4 WKS ON, 2 WKS OFF)
     Route: 048
     Dates: start: 20060517, end: 20071227
  3. SUTENT [Concomitant]
     Dosage: NO TREATMENT
     Route: 048
     Dates: start: 20071228, end: 20080202
  4. SUTENT [Concomitant]
     Dosage: 50 MG / DAY
     Route: 048
     Dates: start: 20080203

REACTIONS (1)
  - OSTEONECROSIS OF JAW [None]
